FAERS Safety Report 7938868-4 (Version None)
Quarter: 2011Q4

REPORT INFORMATION
  Report Type: 
  Country: None (occurrence: None)
  Receive Date: 20111124
  Receipt Date: 20110503
  Transmission Date: 20120403
  Serious: Yes (Other)
  Sender: FDA-Public Use
  Company Number: CN-SHIRE-ALL1-2011-04606

PATIENT
  Age: 31 Year
  Sex: Female

DRUGS (1)
  1. MIDODRINE HYDROCHLORIDE [Suspect]
     Indication: PRODUCT USED FOR UNKNOWN INDICATION
     Dosage: 2.5 MG, 2X/DAY:BID
     Route: 048

REACTIONS (3)
  - MATERNAL EXPOSURE DURING PREGNANCY [None]
  - DRUG DISPENSING ERROR [None]
  - PREMATURE DELIVERY [None]
